FAERS Safety Report 25507174 (Version 4)
Quarter: 2025Q3

REPORT INFORMATION
  Report Type: Other
  Country: CA (occurrence: CA)
  Receive Date: 20250703
  Receipt Date: 20250909
  Transmission Date: 20251020
  Serious: Yes (Hospitalization)
  Sender: APOTEX
  Company Number: CA-APOTEX-2025AP009010

PATIENT
  Sex: Female

DRUGS (3)
  1. LENALIDOMIDE [Suspect]
     Active Substance: LENALIDOMIDE
     Indication: Plasma cell myeloma refractory
     Dosage: 15 MILLIGRAM, QD
     Route: 048
     Dates: start: 20220221
  2. LENALIDOMIDE [Suspect]
     Active Substance: LENALIDOMIDE
     Dosage: 15 MILLIGRAM, Q.O.D.
     Route: 048
  3. LENALIDOMIDE [Suspect]
     Active Substance: LENALIDOMIDE
     Dosage: 15 MILLIGRAM, QD FOR 21/28 DAYS
     Route: 048

REACTIONS (2)
  - Hospitalisation [Unknown]
  - Creatinine renal clearance abnormal [Unknown]

NARRATIVE: CASE EVENT DATE: 20250101
